FAERS Safety Report 9142676 (Version 2)
Quarter: 2013Q2

REPORT INFORMATION
  Report Type: Report from Study
  Country: BR (occurrence: BR)
  Receive Date: 20130306
  Receipt Date: 20130529
  Transmission Date: 20140414
  Serious: Yes (Death, Other)
  Sender: FDA-Public Use
  Company Number: PHHY2013BR021662

PATIENT
  Sex: Female

DRUGS (8)
  1. STARLIX [Suspect]
     Indication: BLOOD TRIGLYCERIDES
     Dosage: 2 DF, QD
     Route: 048
  2. DIOVAN [Suspect]
     Dosage: 2 DF, QD
     Route: 048
  3. DIOVAN [Suspect]
     Dosage: 1 DF, QD
     Route: 048
  4. DIOVAN [Suspect]
     Dosage: 80 MG, (1 TABLET, A DAY)
     Route: 048
  5. NORVASC [Concomitant]
     Dosage: 1 DF, A DAY
     Route: 048
  6. LIPANON [Concomitant]
     Dosage: UNK UKN, UNK
     Route: 048
  7. ANTIBIOTICS [Concomitant]
     Indication: URINARY TRACT INFECTION
     Dosage: UNK UKN, UNK
     Route: 048
  8. ANTIBIOTICS [Concomitant]
     Dosage: UNK UKN, UNK
     Route: 042

REACTIONS (6)
  - Septic shock [Fatal]
  - Pneumonia aspiration [Fatal]
  - Dementia Alzheimer^s type [Fatal]
  - Pneumonia [Fatal]
  - Renal failure acute [Fatal]
  - Urinary tract infection [Not Recovered/Not Resolved]
